FAERS Safety Report 5173245-3 (Version None)
Quarter: 2006Q4

REPORT INFORMATION
  Report Type: 
  Country: None (occurrence: None)
  Receive Date: 20061214
  Receipt Date: 20020121
  Transmission Date: 20070319
  Serious: Yes (Hospitalization)
  Sender: FDA-Public Use
  Company Number: US-BRISTOL-MYERS SQUIBB COMPANY-11678109

PATIENT
  Age: 1 Month
  Sex: Female
  Weight: 2 kg

DRUGS (4)
  1. VIDEX [Suspect]
     Route: 064
  2. ZERIT [Suspect]
     Route: 064
  3. RETROVIR [Suspect]
     Route: 064
  4. RETROVIR [Suspect]
     Dosage: GIVEN RETROVIR SYRUP
     Route: 048

REACTIONS (5)
  - ANAEMIA [None]
  - BLOOD LACTIC ACID INCREASED [None]
  - ELECTROENCEPHALOGRAM ABNORMAL [None]
  - NEUTROPENIA [None]
  - PREGNANCY [None]
